FAERS Safety Report 5585751-8 (Version None)
Quarter: 2007Q4

REPORT INFORMATION
  Report Type: 
  Country: None (occurrence: None)
  Receive Date: 20071204
  Receipt Date: 20070809
  Transmission Date: 20080405
  Serious: Yes (Other)
  Sender: FDA-Public Use
  Company Number: 07-074

PATIENT
  Age: 60 Year
  Sex: Male

DRUGS (12)
  1. IBUPROFEN TABLETS [Suspect]
     Indication: ARTHRITIS
     Dosage: 800 MG PO TID
     Route: 048
     Dates: start: 20070720
  2. IBUPROFEN TABLETS [Suspect]
     Indication: OSTEOARTHRITIS
     Dosage: 800 MG PO TID
     Route: 048
     Dates: start: 20070720
  3. GLYBURIDE [Concomitant]
  4. INILOPRIL [Concomitant]
  5. ACETAZOLIMIDE [Concomitant]
  6. VITAMINS EQUATE MATURE COMPLETE [Concomitant]
  7. CALCIUM [Concomitant]
  8. MAGNESIUM [Concomitant]
  9. ZINC [Concomitant]
  10. NEURONTIN [Concomitant]
  11. TYLENOL W/ CODEINE NO. 3 [Concomitant]
  12. FLEXERIL [Concomitant]

REACTIONS (1)
  - BACK PAIN [None]
